FAERS Safety Report 8881709 (Version 4)
Quarter: 2013Q1

REPORT INFORMATION
  Report Type: Spontaneous
  Country: DE (occurrence: DE)
  Receive Date: 20121105
  Receipt Date: 20130220
  Transmission Date: 20140127
  Serious: Yes (Hospitalization, Other)
  Sender: FDA-Public Use
  Company Number: DE-JNJFOC-20121100908

PATIENT
  Sex: Female
  Weight: 65 kg

DRUGS (9)
  1. XARELTO [Suspect]
     Indication: EMBOLISM VENOUS
     Route: 048
     Dates: start: 201208
  2. XARELTO [Suspect]
     Indication: EMBOLISM VENOUS
     Route: 048
     Dates: start: 201208, end: 20120925
  3. XARELTO [Suspect]
     Indication: PULMONARY EMBOLISM
     Route: 048
     Dates: start: 201208
  4. XARELTO [Suspect]
     Indication: PULMONARY EMBOLISM
     Route: 048
     Dates: start: 201208, end: 20120925
  5. XARELTO [Suspect]
     Indication: DEEP VEIN THROMBOSIS
     Route: 048
     Dates: start: 201208
  6. XARELTO [Suspect]
     Indication: DEEP VEIN THROMBOSIS
     Route: 048
     Dates: start: 201208, end: 20120925
  7. IODINE [Concomitant]
     Indication: THYROIDECTOMY
     Route: 065
  8. CEFUROXIM [Concomitant]
     Indication: PNEUMONIA
     Route: 065
     Dates: start: 20120826, end: 20120904
  9. DESOGESTREL [Concomitant]
     Indication: CONTRACEPTION
     Route: 065

REACTIONS (2)
  - Systemic lupus erythematosus [Unknown]
  - Haematoma [Unknown]
